FAERS Safety Report 5576198-9 (Version None)
Quarter: 2007Q4

REPORT INFORMATION
  Report Type: 
  Country: None (occurrence: None)
  Receive Date: 20071228
  Receipt Date: 20071217
  Transmission Date: 20080405
  Serious: Yes (Hospitalization)
  Sender: FDA-Public Use
  Company Number: US-ROCHE-537124

PATIENT
  Age: 40 Year
  Sex: Male

DRUGS (4)
  1. FUZEON [Suspect]
     Route: 058
     Dates: end: 20060101
  2. FUZEON [Suspect]
     Route: 058
     Dates: start: 20071101
  3. ANTIVIRAL [Concomitant]
  4. TRUVADA [Concomitant]
     Dosage: DRUG NAME REPORTED AS TRAVADA

REACTIONS (4)
  - DYSPNOEA EXERTIONAL [None]
  - ERYTHEMA [None]
  - HYPERSENSITIVITY [None]
  - PITTING OEDEMA [None]
